FAERS Safety Report 7171786-0 (Version None)
Quarter: 2010Q4

REPORT INFORMATION
  Report Type: 
  Country: None (occurrence: None)
  Receive Date: 20101217
  Receipt Date: 20101201
  Transmission Date: 20110411
  Serious: Yes (Other)
  Sender: FDA-Public Use
  Company Number: BE-GENENTECH-310308

PATIENT
  Sex: Female

DRUGS (2)
  1. LUCENTIS [Suspect]
     Indication: MACULAR DEGENERATION
     Dosage: UNK
     Route: 031
     Dates: start: 20091201
  2. OFLOXACIN [Concomitant]
     Indication: PRODUCT USED FOR UNKNOWN INDICATION

REACTIONS (9)
  - BLINDNESS [None]
  - ENDOPHTHALMITIS [None]
  - EYE OPERATION [None]
  - EYE PAIN [None]
  - HYPOPYON [None]
  - PROTEUS TEST POSITIVE [None]
  - RETINAL NEOVASCULARISATION [None]
  - STAPHYLOCOCCUS TEST POSITIVE [None]
  - VISUAL ACUITY REDUCED [None]
